FAERS Safety Report 10235101 (Version 1)
Quarter: 2014Q2

REPORT INFORMATION
  Report Type: Report from Study
  Country: US (occurrence: US)
  Receive Date: 20140613
  Receipt Date: 20140613
  Transmission Date: 20141212
  Serious: Yes (Other)
  Sender: FDA-Public Use
  Company Number: US-UCBSA-2014001706

PATIENT
  Sex: 0

DRUGS (3)
  1. LACOSAMIDE [Suspect]
     Indication: CONVULSION
     Dosage: UNK
  2. BLINDED LACOSAMIDE [Suspect]
  3. LEVETIRACETAM [Suspect]

REACTIONS (7)
  - Bradycardia [Unknown]
  - Erectile dysfunction [Unknown]
  - Memory impairment [Unknown]
  - Alopecia [Unknown]
  - Pruritus [Unknown]
  - Dizziness [Unknown]
  - Mood swings [Unknown]
